FAERS Safety Report 8928509 (Version 2)
Quarter: 2012Q4

REPORT INFORMATION
  Report Type: 
  Country: AU (occurrence: AU)
  Receive Date: 20121127
  Receipt Date: 20121210
  Transmission Date: 20130627
  Serious: Yes (Death, Life-Threatening, Hospitalization, Other)
  Sender: FDA-Public Use
  Company Number: AU-B.I. PHARMACEUTICALS,INC./RIDGEFIELD-2012-AU-01903AU

PATIENT
  Age: 79 Year
  Sex: Female

DRUGS (11)
  1. PRADAXA [Suspect]
     Indication: CEREBROVASCULAR ACCIDENT PROPHYLAXIS
     Dosage: 220 mg
     Route: 048
     Dates: start: 20110628, end: 20120901
  2. PRADAXA [Suspect]
     Indication: ATRIAL FIBRILLATION
  3. SYMBICORT [Concomitant]
     Indication: ASTHMA
     Dosage: 200/6 mcg
     Route: 055
  4. OSTEVIT [Concomitant]
     Indication: HYPOVITAMINOSIS
     Dosage: 25 mcg
     Route: 048
  5. FUROSEMIDE [Concomitant]
     Indication: FLUID RETENTION
     Dosage: 20 mg
     Route: 048
  6. ISOSORBIDE [Concomitant]
     Indication: ANGINA PECTORIS
     Dosage: half tablet in the morning
     Route: 048
  7. METOPROLOL [Concomitant]
     Indication: HYPERTENSION
     Dosage: 100 mg
     Route: 048
  8. DURO-K [Concomitant]
     Indication: ELECTROLYTE SUBSTITUTION THERAPY
     Dosage: 1200 mg
     Route: 048
  9. RABEPRAZOLE [Concomitant]
     Indication: GASTROOESOPHAGEAL REFLUX DISEASE
     Dosage: 20 mg
     Route: 048
  10. RISEDRONATE [Concomitant]
     Indication: OSTEOPOROSIS
     Dosage: 5 mg
     Route: 048
  11. SPIRIVA [Concomitant]
     Indication: CHRONIC OBSTRUCTIVE PULMONARY DISEASE
     Dosage: 18 mcg
     Route: 055

REACTIONS (13)
  - Pneumonia [Fatal]
  - Acute pulmonary oedema [Recovered/Resolved]
  - Respiratory distress [Recovered/Resolved]
  - Respiratory distress [Unknown]
  - Acute respiratory failure [Recovered/Resolved]
  - Atrial fibrillation [Recovered/Resolved]
  - Anticoagulation drug level above therapeutic [Recovered/Resolved]
  - Pyrexia [Recovered/Resolved]
  - Urinary incontinence [Unknown]
  - Urinary retention [Unknown]
  - Haematuria [Recovered/Resolved]
  - Vulvovaginal candidiasis [Unknown]
  - Pyrexia [Unknown]
